FAERS Safety Report 26208405 (Version 1)
Quarter: 2025Q4

REPORT INFORMATION
  Report Type: Spontaneous
  Country: US (occurrence: None)
  Receive Date: 20251227
  Receipt Date: 20251227
  Transmission Date: 20260118
  Serious: No
  Sender: FDA-CTU
  Company Number: None

PATIENT
  Age: 18 Year
  Sex: Male

DRUGS (1)
  1. BENZOYL PEROXIDE [Suspect]
     Active Substance: BENZOYL PEROXIDE
     Indication: Acne
     Route: 061

REACTIONS (5)
  - Skin irritation [None]
  - Erythema [None]
  - Acne [None]
  - Inflammation [None]
  - Product container seal issue [None]

NARRATIVE: CASE EVENT DATE: 20251201
